FAERS Safety Report 8558658-1 (Version None)
Quarter: 2012Q3

REPORT INFORMATION
  Report Type: 
  Country: None (occurrence: None)
  Receive Date: 20120801
  Receipt Date: 20120726
  Transmission Date: 20120928
  Serious: Yes (Other)
  Sender: FDA-Public Use
  Company Number: PHHY2012CN049446

PATIENT
  Age: 75 Year
  Sex: Female

DRUGS (6)
  1. PERINDOPRIL ERBUMINE [Interacting]
     Dosage: 4 MG, UNK
  2. LEVOTHYROXINE SODIUM [Concomitant]
     Indication: HYPOTHYROIDISM
     Dosage: 50 UG, UNK
  3. ACETYLSALICYLIC ACID SRT [Suspect]
     Dosage: 100 MG, UNK
  4. CLOPIDOGREL [Concomitant]
     Dosage: 75 MG, UNK
  5. ATORVASTATIN CALCIUM [Concomitant]
     Dosage: 20 MG, QD
  6. METOPROLOL TARTRATE [Concomitant]
     Dosage: 12.5 MG, QD

REACTIONS (2)
  - DRUG INTERACTION [None]
  - RENAL IMPAIRMENT [None]
